FAERS Safety Report 6171566-9 (Version None)
Quarter: 2009Q2

REPORT INFORMATION
  Report Type: 
  Country: None (occurrence: None)
  Receive Date: 20090429
  Receipt Date: 20090421
  Transmission Date: 20091009
  Serious: Yes (Hospitalization, Other)
  Sender: FDA-Public Use
  Company Number: FR-ASTRAZENECA-2008CG01049

PATIENT
  Age: 17484 Day
  Sex: Male

DRUGS (11)
  1. ATENOLOL [Suspect]
     Route: 065
     Dates: start: 20071013, end: 20080601
  2. AZD6140 [Suspect]
     Indication: ACUTE CORONARY SYNDROME
     Route: 048
     Dates: start: 20071012, end: 20080601
  3. CRESTOR [Concomitant]
     Dates: start: 20071012
  4. RAMIPRIL [Concomitant]
     Dates: start: 20071012
  5. TRINITRINE [Concomitant]
     Dates: start: 20071012
  6. DISCOTRINE [Concomitant]
     Dates: start: 20071016
  7. EFFEXOR [Concomitant]
     Dates: start: 20071017
  8. DEPAKOTE [Concomitant]
     Dates: start: 20071017
  9. INIPOMP [Concomitant]
     Dates: start: 20080108
  10. ACETYLSALICYLATE LYSINE [Concomitant]
     Dates: start: 20071012
  11. METOPROLOL SUCCINATE [Concomitant]
     Dates: end: 20071013

REACTIONS (1)
  - RETROPERITONEAL FIBROSIS [None]
